FAERS Safety Report 11863321 (Version 1)
Quarter: 2015Q4

REPORT INFORMATION
  Report Type: Spontaneous
  Country: US (occurrence: None)
  Receive Date: 20151222
  Receipt Date: 20151222
  Transmission Date: 20160305
  Serious: No
  Sender: FDA-Public Use
  Company Number: None

PATIENT
  Age: 36 Year
  Sex: Female
  Weight: 127.46 kg

DRUGS (1)
  1. DOXYCYLINE 100MG [Suspect]
     Active Substance: DOXYCYCLINE
     Indication: SINUSITIS
     Route: 048

REACTIONS (2)
  - Pruritus generalised [None]
  - Nausea [None]

NARRATIVE: CASE EVENT DATE: 20151221
